FAERS Safety Report 7207492-3 (Version None)
Quarter: 2010Q4

REPORT INFORMATION
  Report Type: 
  Country: None (occurrence: None)
  Receive Date: 20101221
  Receipt Date: 20101212
  Transmission Date: 20110411
  Serious: Yes (Other)
  Sender: FDA-Public Use
  Company Number: 2010SP064569

PATIENT
  Sex: Female

DRUGS (1)
  1. IMPLANON [Suspect]
     Indication: CONTRACEPTION
     Dosage: 68 MG; SBDE
     Route: 059
     Dates: start: 20100201

REACTIONS (6)
  - AMENORRHOEA [None]
  - DIZZINESS [None]
  - HEADACHE [None]
  - PRURITUS [None]
  - SYNCOPE [None]
  - VOMITING [None]
